FAERS Safety Report 16378662 (Version 1)
Quarter: 2019Q2

REPORT INFORMATION
  Report Type: Spontaneous
  Country: IL (occurrence: IL)
  Receive Date: 20190531
  Receipt Date: 20190531
  Transmission Date: 20190711
  Serious: Yes (Other)
  Sender: FDA-Public Use
  Company Number: IL-SA-2019SA144582

PATIENT
  Sex: Female

DRUGS (3)
  1. FENUGREEK [TRIGONELLA FOENUM-GRAECUM] [Concomitant]
  2. VITAMIN D [VITAMIN D NOS] [Concomitant]
     Active Substance: VITAMIN D NOS
  3. LANTUS [Suspect]
     Active Substance: INSULIN GLARGINE
     Dosage: 20 U, QD
     Route: 058

REACTIONS (6)
  - Miliaria [Recovered/Resolved]
  - Cataract [Not Recovered/Not Resolved]
  - Abdominal neoplasm [Unknown]
  - Blood glucose increased [Unknown]
  - Peripheral swelling [Unknown]
  - Retinal disorder [Unknown]

NARRATIVE: CASE EVENT DATE: 20190522
